FAERS Safety Report 7608668-3 (Version None)
Quarter: 2011Q3

REPORT INFORMATION
  Report Type: 
  Country: None (occurrence: None)
  Receive Date: 20110714
  Receipt Date: 20110621
  Transmission Date: 20111222
  Serious: No
  Sender: FDA-Public Use
  Company Number: US-B.I. PHARMACEUTICALS,INC./RIDGEFIELD-2011-BP-16233BP

PATIENT
  Sex: Female

DRUGS (7)
  1. SPIRIVA [Suspect]
     Indication: CHRONIC OBSTRUCTIVE PULMONARY DISEASE
     Dosage: 18 MCG
     Route: 055
     Dates: start: 20090101
  2. PREDNISONE [Concomitant]
     Indication: CHRONIC OBSTRUCTIVE PULMONARY DISEASE
  3. OXYGEN [Concomitant]
     Indication: CHRONIC OBSTRUCTIVE PULMONARY DISEASE
  4. SPIRIVA [Suspect]
     Indication: ASTHMA
  5. CALCIUM GLUCONATE [Concomitant]
     Indication: SUPPLEMENTATION THERAPY
  6. ASPIRIN [Concomitant]
     Indication: PROPHYLAXIS
  7. BENADRYL [Concomitant]
     Indication: HYPERSENSITIVITY

REACTIONS (2)
  - UNEVALUABLE EVENT [None]
  - DYSPNOEA [None]
